FAERS Safety Report 5575324-5 (Version None)
Quarter: 2007Q4

REPORT INFORMATION
  Report Type: 
  Country: None (occurrence: None)
  Receive Date: 20071227
  Receipt Date: 20071215
  Transmission Date: 20080405
  Serious: Yes (Other)
  Sender: FDA-Public Use
  Company Number: US-PFIZER INC-2007081648

PATIENT
  Sex: Male
  Weight: 73.5 kg

DRUGS (6)
  1. CHANTIX [Suspect]
     Indication: SMOKING CESSATION THERAPY
     Route: 048
     Dates: start: 20070101, end: 20070101
  2. HYDROCODONE BITARTRATE [Concomitant]
  3. NEXIUM [Concomitant]
  4. IBUPROFEN [Concomitant]
  5. ACETYLSALICYLIC ACID SRT [Concomitant]
  6. HYDROCODONE BITARTRATE + ACETAMINOPHEN [Concomitant]

REACTIONS (9)
  - ABNORMAL DREAMS [None]
  - ANGER [None]
  - FEELING ABNORMAL [None]
  - HALLUCINATION, VISUAL [None]
  - MOOD SWINGS [None]
  - NAUSEA [None]
  - NIGHTMARE [None]
  - PHARYNGOLARYNGEAL PAIN [None]
  - SLEEP DISORDER [None]
